FAERS Safety Report 7513968-1 (Version None)
Quarter: 2011Q2

REPORT INFORMATION
  Report Type: 
  Country: None (occurrence: None)
  Receive Date: 20110531
  Receipt Date: 20110526
  Transmission Date: 20111010
  Serious: Yes (Other)
  Sender: FDA-Public Use
  Company Number: CHPA2011US07269

PATIENT
  Age: 70 Year
  Sex: Female

DRUGS (1)
  1. GAS-X EXTSTR CHEWABLE TABS CHERRY CREME [Suspect]
     Indication: FLATULENCE
     Dosage: 3 DF, QD
     Route: 048
     Dates: start: 20110524, end: 20110525

REACTIONS (4)
  - HEADACHE [None]
  - FEELING HOT [None]
  - INSOMNIA [None]
  - BLOOD GLUCOSE DECREASED [None]
